FAERS Safety Report 7477989-X (Version None)
Quarter: 2011Q2

REPORT INFORMATION
  Report Type: 
  Country: None (occurrence: None)
  Receive Date: 20110513
  Receipt Date: 20110502
  Transmission Date: 20111010
  Serious: Yes (Hospitalization, Disabling)
  Sender: FDA-Public Use
  Company Number: BE-CELGENEUS-013-21880-11041253

PATIENT
  Sex: Female
  Weight: 50 kg

DRUGS (8)
  1. REVLIMID [Suspect]
     Indication: MYELODYSPLASTIC SYNDROME
     Dosage: 5-10 MG
     Route: 048
  2. OMEPRAZOLE [Concomitant]
     Indication: OESOPHAGEAL PAIN
     Dosage: 20 MILLIGRAM
     Route: 065
     Dates: start: 20100101
  3. VITAMIN D [Concomitant]
     Route: 065
  4. D-CURE [Concomitant]
     Indication: OSTEOPOROSIS
     Dosage: .0667
     Route: 065
     Dates: start: 20110101
  5. REVLIMID [Suspect]
     Dosage: 5 MILLIGRAM
     Route: 048
  6. LORMETAZEPAM [Concomitant]
     Indication: INSOMNIA
     Route: 065
     Dates: start: 20100101
  7. ZOMETA [Concomitant]
     Route: 065
  8. CALCIUM [Concomitant]
     Indication: OSTEOPOROSIS
     Dosage: 1
     Route: 065
     Dates: start: 20110101

REACTIONS (3)
  - SPINAL FRACTURE [None]
  - OSTEOPOROSIS [None]
  - LUMBAR VERTEBRAL FRACTURE [None]
